FAERS Safety Report 5616040-0 (Version None)
Quarter: 2008Q1

REPORT INFORMATION
  Report Type: 
  Country: None (occurrence: None)
  Receive Date: 20080206
  Receipt Date: 20080129
  Transmission Date: 20080703
  Serious: Yes (Hospitalization)
  Sender: FDA-Public Use
  Company Number: IT-GENENTECH-255340

PATIENT
  Age: 76 Year
  Sex: Male

DRUGS (18)
  1. MABTHERA [Suspect]
     Indication: DIFFUSE LARGE B-CELL LYMPHOMA
     Dosage: 650 MG, 1/WEEK
  2. MABTHERA [Suspect]
     Indication: ANAEMIA HAEMOLYTIC AUTOIMMUNE
  3. PREDNISONE TAB [Concomitant]
     Indication: DIFFUSE LARGE B-CELL LYMPHOMA
     Dosage: 100 MG, QD
  4. PREDNISONE TAB [Concomitant]
     Indication: ANAEMIA HAEMOLYTIC AUTOIMMUNE
  5. ETOPOSIDE [Concomitant]
     Indication: DIFFUSE LARGE B-CELL LYMPHOMA
  6. ETOPOSIDE [Concomitant]
     Indication: ANAEMIA HAEMOLYTIC AUTOIMMUNE
  7. DOXORUBICIN [Concomitant]
     Indication: DIFFUSE LARGE B-CELL LYMPHOMA
  8. DOXORUBICIN [Concomitant]
     Indication: ANAEMIA HAEMOLYTIC AUTOIMMUNE
  9. CYCLOPHOSPHAMIDE [Concomitant]
     Indication: DIFFUSE LARGE B-CELL LYMPHOMA
  10. CYCLOPHOSPHAMIDE [Concomitant]
     Indication: ANAEMIA HAEMOLYTIC AUTOIMMUNE
  11. VINCRISTINE [Concomitant]
     Indication: DIFFUSE LARGE B-CELL LYMPHOMA
  12. VINCRISTINE [Concomitant]
     Indication: ANAEMIA HAEMOLYTIC AUTOIMMUNE
  13. BLEOMYCIN [Concomitant]
     Indication: DIFFUSE LARGE B-CELL LYMPHOMA
  14. BLEOMYCIN [Concomitant]
     Indication: ANAEMIA HAEMOLYTIC AUTOIMMUNE
  15. IDARUBICIN HCL [Concomitant]
     Indication: DIFFUSE LARGE B-CELL LYMPHOMA
  16. IDARUBICIN HCL [Concomitant]
     Indication: ANAEMIA HAEMOLYTIC AUTOIMMUNE
  17. CISPLATIN [Concomitant]
     Indication: DIFFUSE LARGE B-CELL LYMPHOMA
  18. CISPLATIN [Concomitant]
     Indication: ANAEMIA HAEMOLYTIC AUTOIMMUNE

REACTIONS (1)
  - PROGRESSIVE MULTIFOCAL LEUKOENCEPHALOPATHY [None]
